FAERS Safety Report 6182915-X (Version None)
Quarter: 2009Q2

REPORT INFORMATION
  Report Type: 
  Country: None (occurrence: None)
  Receive Date: 20090505
  Receipt Date: 20090423
  Transmission Date: 20091009
  Serious: Yes (Other)
  Sender: FDA-Public Use
  Company Number: 2009AP001667

PATIENT
  Age: 94 Year
  Sex: Female

DRUGS (11)
  1. ALENDRONATE SODIUM [Suspect]
     Indication: OSTEOPOROSIS
     Dosage: 70 MG; PO
     Route: 048
     Dates: start: 20030509, end: 20090209
  2. CALCIUM CARBONATE (CALCIUM CARBONATE) [Concomitant]
  3. COLECALCIFEROL (COLECALCIFEROL) [Concomitant]
  4. AMITRIPTYLINE HCL [Concomitant]
  5. BENDROFLUMETHIAZIDE (BENDROFLUMETHIAZIDE) [Concomitant]
  6. LERCANIDIPINE [Concomitant]
  7. OMEPRAZOLE [Concomitant]
  8. ACETAMINOPHEN [Concomitant]
  9. SENNA (SENNA) [Concomitant]
  10. TEMAZEPAM [Concomitant]
  11. TRAMADOL HCL [Concomitant]

REACTIONS (1)
  - OSTEONECROSIS [None]
